FAERS Safety Report 8949864 (Version 1)
Quarter: 2012Q4

REPORT INFORMATION
  Report Type: 
  Country: US (occurrence: US)
  Receive Date: 20121206
  Receipt Date: 20121206
  Transmission Date: 20130627
  Serious: Yes (Hospitalization)
  Sender: FDA-Public Use
  Company Number: US-TEVA-374257USA

PATIENT
  Age: 63 Year
  Sex: Female

DRUGS (3)
  1. COPAXONE [Suspect]
     Indication: MULTIPLE SCLEROSIS
     Dates: start: 20101203
  2. PLAVIX [Suspect]
     Dates: start: 201210
  3. ASA [Suspect]
     Dates: start: 201210

REACTIONS (8)
  - Chest discomfort [Unknown]
  - Heart rate increased [Unknown]
  - Feeling cold [Unknown]
  - Cold sweat [Unknown]
  - Back pain [Unknown]
  - Abdominal discomfort [Unknown]
  - Muscle spasms [Unknown]
  - Injection site bruising [Recovered/Resolved]
